FAERS Safety Report 6213262-5 (Version None)
Quarter: 2009Q2

REPORT INFORMATION
  Report Type: 
  Country: None (occurrence: None)
  Receive Date: 20090602
  Receipt Date: 20090602
  Transmission Date: 20091009
  Serious: Yes (Other)
  Sender: FDA-Public Use
  Company Number: None

PATIENT
  Sex: Male
  Weight: 25.4014 kg

DRUGS (2)
  1. CARBAMAZEPINE [Suspect]
     Indication: MANIA
     Dosage: 100MG BID PO 150MG BID PO
     Route: 048
     Dates: start: 20090427, end: 20090504
  2. CARBAMAZEPINE [Suspect]
     Indication: MANIA
     Dosage: 100MG BID PO 150MG BID PO
     Route: 048
     Dates: start: 20090504, end: 20090512

REACTIONS (1)
  - TIC [None]
